FAERS Safety Report 5018959-0 (Version None)
Quarter: 2006Q2

REPORT INFORMATION
  Report Type: 
  Country: None (occurrence: None)
  Receive Date: 20060606
  Receipt Date: 20060411
  Transmission Date: 20061013
  Serious: Yes (Hospitalization)
  Sender: FDA-Public Use
  Company Number: 2006AC00736

PATIENT
  Age: 21354 Day
  Sex: Female

DRUGS (10)
  1. FASLODEX [Suspect]
     Indication: BREAST CANCER
     Dosage: 2 TIMES 5 ML INJECTION
     Route: 030
     Dates: start: 20050801, end: 20060313
  2. REDOMEX [Concomitant]
     Indication: DEPRESSION
     Route: 048
  3. SINGULAIR [Concomitant]
     Indication: CHRONIC OBSTRUCTIVE PULMONARY DISEASE
     Route: 048
  4. TRAZOLAN [Concomitant]
     Indication: DEPRESSION
     Route: 048
  5. DUOVENT [Concomitant]
     Indication: CHRONIC OBSTRUCTIVE PULMONARY DISEASE
     Route: 055
  6. Q VAN [Concomitant]
     Indication: CHRONIC OBSTRUCTIVE PULMONARY DISEASE
     Route: 055
  7. FEMARA [Concomitant]
     Indication: HORMONE THERAPY
     Dates: start: 20050216, end: 20050707
  8. CYCLOPHOSPHAMIDE [Concomitant]
     Indication: CHEMOTHERAPY
     Dosage: 6 CYCLES
     Dates: start: 20040622, end: 20050104
  9. FLUOROURACIL [Concomitant]
     Indication: CHEMOTHERAPY
     Dosage: 6 CYCLES
     Dates: start: 20040622, end: 20050104
  10. EPIRUBICIN [Concomitant]
     Indication: CHEMOTHERAPY
     Dosage: 6 CYCLES
     Dates: start: 20040622, end: 20050104

REACTIONS (5)
  - BRONCHOPNEUMONIA [None]
  - FATIGUE [None]
  - HAEMOPHILUS INFECTION [None]
  - INTERSTITIAL LUNG DISEASE [None]
  - PHARYNGITIS [None]
